FAERS Safety Report 9231634 (Version 1)
Quarter: 2013Q2

REPORT INFORMATION
  Report Type: Report from Study
  Country: US (occurrence: US)
  Receive Date: 20130415
  Receipt Date: 20130415
  Transmission Date: 20140414
  Serious: Yes (Other)
  Sender: FDA-Public Use
  Company Number: US-JNJFOC-20130402926

PATIENT
  Age: 46 Year
  Sex: Female
  Weight: 81.65 kg

DRUGS (8)
  1. REMICADE [Suspect]
     Indication: PSORIATIC ARTHROPATHY
     Route: 042
     Dates: start: 20130225, end: 20130225
  2. BENADRYL [Suspect]
     Indication: PHARYNGEAL OEDEMA
     Route: 065
     Dates: start: 20130225
  3. STEROIDS NOS [Suspect]
     Indication: PHARYNGEAL OEDEMA
     Route: 065
     Dates: start: 20130225
  4. PREDNISONE [Concomitant]
     Indication: ARTHRITIS
     Route: 048
  5. METHOTREXATE [Concomitant]
     Indication: ARTHRITIS
     Route: 065
  6. NORVASC [Concomitant]
     Indication: HYPERTENSION
     Route: 048
     Dates: start: 2003
  7. CYMBALTA [Concomitant]
     Indication: DEPRESSION
     Route: 048
     Dates: start: 2010
  8. FOLIC ACID [Concomitant]
     Route: 065

REACTIONS (2)
  - Pharyngeal oedema [Recovered/Resolved]
  - Infusion related reaction [Recovered/Resolved]
